FAERS Safety Report 22618289 (Version 4)
Quarter: 2024Q1

REPORT INFORMATION
  Report Type: Other
  Country: US (occurrence: None)
  Receive Date: 20230620
  Receipt Date: 20240208
  Transmission Date: 20240409
  Serious: Yes (Other)
  Sender: FDA-Public Use
  Company Number: US-ROCHE-3276658

PATIENT
  Age: 78 Year
  Sex: Female
  Weight: 101.6 kg

DRUGS (19)
  1. CELLCEPT [Suspect]
     Active Substance: MYCOPHENOLATE MOFETIL
     Indication: Interstitial lung disease
     Dosage: 1000MG BID
     Route: 048
  2. CELLCEPT [Suspect]
     Active Substance: MYCOPHENOLATE MOFETIL
     Dosage: 2 TABLETS BID
     Route: 048
  3. TYLENOL [Concomitant]
     Active Substance: ACETAMINOPHEN
     Indication: Pain
     Route: 048
  4. ALBUTEROL [Concomitant]
     Active Substance: ALBUTEROL
     Indication: Product used for unknown indication
     Route: 048
  5. VOLTAREN [Concomitant]
     Active Substance: DICLOFENAC SODIUM
     Indication: Product used for unknown indication
     Route: 061
  6. TYLENOL PM [Concomitant]
     Active Substance: ACETAMINOPHEN\DIPHENHYDRAMINE
     Indication: Product used for unknown indication
     Dosage: 25-500MG
     Route: 048
  7. NEURONTIN CAP [Concomitant]
     Indication: Product used for unknown indication
     Route: 048
  8. COZAAR [Concomitant]
     Active Substance: LOSARTAN POTASSIUM
     Indication: Product used for unknown indication
     Route: 048
  9. MINERALS\VITAMINS [Concomitant]
     Active Substance: MINERALS\VITAMINS
     Indication: Product used for unknown indication
     Route: 048
  10. NYSTATIN [Concomitant]
     Active Substance: NYSTATIN
     Indication: Product used for unknown indication
     Dosage: POWDER
     Route: 065
  11. ZOFRAN [Concomitant]
     Active Substance: ONDANSETRON HYDROCHLORIDE
     Indication: Nausea
     Route: 048
  12. OXYGEN [Concomitant]
     Active Substance: OXYGEN
     Indication: Product used for unknown indication
     Route: 045
  13. PROTONIX [Concomitant]
     Active Substance: PANTOPRAZOLE SODIUM
     Indication: Product used for unknown indication
     Route: 048
  14. PROTONIX [Concomitant]
     Active Substance: PANTOPRAZOLE SODIUM
     Route: 048
  15. ULTRAM [Concomitant]
     Active Substance: TRAMADOL HYDROCHLORIDE
     Indication: Pain
  16. CALAN SR [Concomitant]
     Active Substance: VERAPAMIL HYDROCHLORIDE
     Indication: Product used for unknown indication
     Route: 048
  17. ERGOCALCIFEROL [Concomitant]
     Active Substance: ERGOCALCIFEROL
     Indication: Product used for unknown indication
     Route: 048
  18. COUMADIN [Concomitant]
     Active Substance: WARFARIN SODIUM
     Indication: Product used for unknown indication
     Route: 065
  19. COUMADIN [Concomitant]
     Active Substance: WARFARIN SODIUM
     Dosage: 3.75 MG ON MONDAY
     Route: 065

REACTIONS (53)
  - Atrial tachycardia [Unknown]
  - Pulmonary embolism [Unknown]
  - Pulmonary hypertension [Unknown]
  - Chronic respiratory failure [Unknown]
  - Carotid artery stenosis [Unknown]
  - Spinal compression fracture [Unknown]
  - Senile osteoporosis [Unknown]
  - Osteoporotic fracture [Unknown]
  - Deafness [Unknown]
  - Pneumonia [Recovered/Resolved]
  - Parkinson^s disease [Unknown]
  - Off label use [Unknown]
  - Essential hypertension [Unknown]
  - Type V hyperlipidaemia [Unknown]
  - Oesophageal stenosis [Unknown]
  - Large intestine polyp [Unknown]
  - Varicose vein [Unknown]
  - Asthma [Unknown]
  - Dyspnoea exertional [Unknown]
  - Obesity [Unknown]
  - Neck pain [Unknown]
  - Restless legs syndrome [Unknown]
  - Hiatus hernia [Unknown]
  - Obstructive sleep apnoea syndrome [Unknown]
  - Muscular weakness [Unknown]
  - Nausea [Unknown]
  - Lumbar radiculopathy [Unknown]
  - Lumbar spinal stenosis [Unknown]
  - Chronic kidney disease [Unknown]
  - Cervical radiculopathy [Unknown]
  - Ejection fraction decreased [Unknown]
  - Osteopenia [Unknown]
  - Osteoarthritis [Unknown]
  - Oropharyngeal pain [Recovered/Resolved]
  - Stomatitis [Recovered/Resolved]
  - Vitamin D deficiency [Unknown]
  - Back pain [Unknown]
  - Spinal pain [Unknown]
  - Gastrooesophageal reflux disease [Unknown]
  - Asthenia [Unknown]
  - Tremor [Unknown]
  - Neuropathy peripheral [Unknown]
  - Illness [Unknown]
  - Heart rate abnormal [Unknown]
  - Respiration abnormal [Unknown]
  - Physical examination abnormal [Unknown]
  - Oxygen saturation abnormal [Unknown]
  - Impaired gastric emptying [Unknown]
  - Cardiac disorder [Unknown]
  - Myofascial pain syndrome [Unknown]
  - Anaemia macrocytic [Unknown]
  - Laboratory test abnormal [Unknown]
  - Aortic valve stenosis [Unknown]
